FAERS Safety Report 5549894-7 (Version None)
Quarter: 2007Q4

REPORT INFORMATION
  Report Type: 
  Country: None (occurrence: None)
  Receive Date: 20071212
  Receipt Date: 20071211
  Transmission Date: 20080405
  Serious: Yes (Hospitalization)
  Sender: FDA-Public Use
  Company Number: US-BRISTOL-MYERS SQUIBB COMPANY-14001747

PATIENT
  Age: 65 Year
  Sex: Female

DRUGS (2)
  1. CYCLOPHOSPHAMIDE [Suspect]
  2. PREDNISOLONE [Suspect]
     Indication: TEMPORAL ARTERITIS

REACTIONS (2)
  - MULTI-ORGAN FAILURE [None]
  - STRONGYLOIDIASIS [None]
